FAERS Safety Report 5573818-X (Version None)
Quarter: 2007Q4

REPORT INFORMATION
  Report Type: 
  Country: None (occurrence: None)
  Receive Date: 20071226
  Receipt Date: 20071214
  Transmission Date: 20080405
  Serious: Yes (Hospitalization)
  Sender: FDA-Public Use
  Company Number: EC-PFIZER INC-2007105399

PATIENT
  Age: 64 Year
  Sex: Male

DRUGS (2)
  1. LYRICA [Suspect]
     Route: 048
  2. MOBIC [Concomitant]

REACTIONS (1)
  - CEREBROVASCULAR ACCIDENT [None]
